FAERS Safety Report 19416673 (Version 4)
Quarter: 2021Q3

REPORT INFORMATION
  Report Type: Report from Study
  Country: CA (occurrence: CA)
  Receive Date: 20210614
  Receipt Date: 20210729
  Transmission Date: 20211014
  Serious: Yes (Hospitalization)
  Sender: FDA-Public Use
  Company Number: CA-JNJFOC-20201153464

PATIENT
  Age: 60 Year
  Sex: Female
  Weight: 67 kg

DRUGS (3)
  1. REMICADE [Suspect]
     Active Substance: INFLIXIMAB
     Route: 042
  2. REMICADE [Suspect]
     Active Substance: INFLIXIMAB
     Indication: CROHN^S DISEASE
     Dosage: SHE CANCELLED HER DEC 3RD APPOINTMENT., RE?INDUCTION DOSE IS ORDERED BY PHYSICIAN.
     Route: 042
     Dates: start: 20191129, end: 202011
  3. REMICADE [Suspect]
     Active Substance: INFLIXIMAB
     Route: 042
     Dates: start: 20210722

REACTIONS (8)
  - Product use issue [Unknown]
  - Off label use [Unknown]
  - Electrolyte imbalance [Unknown]
  - Anal incontinence [Unknown]
  - Enterostomy [Recovering/Resolving]
  - Small intestinal resection [Recovering/Resolving]
  - Drug level decreased [Unknown]
  - Abscess [Unknown]

NARRATIVE: CASE EVENT DATE: 20201130
